FAERS Safety Report 13613065 (Version 2)
Quarter: 2017Q3

REPORT INFORMATION
  Report Type: Spontaneous
  Country: US (occurrence: US)
  Receive Date: 20170605
  Receipt Date: 20170727
  Transmission Date: 20171127
  Serious: Yes (Other)
  Sender: FDA-Public Use
  Company Number: US-ALEXION PHARMACEUTICALS INC.-A201706039

PATIENT
  Sex: Male

DRUGS (1)
  1. SOLIRIS [Suspect]
     Active Substance: ECULIZUMAB
     Indication: PRODUCT USED FOR UNKNOWN INDICATION
     Route: 042

REACTIONS (7)
  - Cold sweat [Unknown]
  - Blister [Unknown]
  - Angina pectoris [Unknown]
  - Peripheral swelling [Unknown]
  - Scab [Unknown]
  - Hyperhidrosis [Unknown]
  - Asthenia [Unknown]
